FAERS Safety Report 14303218 (Version 1)
Quarter: 2017Q4

REPORT INFORMATION
  Report Type: Spontaneous
  Country: FR (occurrence: FR)
  Receive Date: 20171219
  Receipt Date: 20171219
  Transmission Date: 20180321
  Serious: Yes (Other)
  Sender: FDA-Public Use
  Company Number: FR-TEVA-2017-FR-831926

PATIENT
  Age: 25 Year
  Sex: Female

DRUGS (1)
  1. ISOTRETINOINE [Suspect]
     Active Substance: ISOTRETINOIN
     Indication: ACNE
     Route: 048
     Dates: start: 201703

REACTIONS (1)
  - Parotid abscess [Recovered/Resolved]

NARRATIVE: CASE EVENT DATE: 201708
